FAERS Safety Report 6173937-3 (Version None)
Quarter: 2009Q2

REPORT INFORMATION
  Report Type: 
  Country: None (occurrence: None)
  Receive Date: 20090430
  Receipt Date: 20090423
  Transmission Date: 20091009
  Serious: Yes (Hospitalization)
  Sender: FDA-Public Use
  Company Number: FR-PFIZER INC-2009196349

PATIENT

DRUGS (7)
  1. TAHOR [Suspect]
     Indication: DYSLIPIDAEMIA
     Dosage: 10 MG, 1X/DAY
     Route: 048
  2. PREVISCAN [Suspect]
     Indication: HIP ARTHROPLASTY
     Dosage: 5 MG ON PAIR DAY AND 10 MG OF IMPAIR DAY
     Route: 048
     Dates: end: 20081203
  3. AMIODARONE [Suspect]
     Indication: ARRHYTHMIA
     Dosage: 200 MG, 1X/DAY
     Route: 048
  4. SEROPRAM [Suspect]
     Dosage: 20 MG, 2X/DAY
     Route: 048
  5. PERINDOPRIL ERBUMINE [Concomitant]
     Dosage: 2 MG, 1X/DAY
     Dates: end: 20081202
  6. ESIDRIX [Concomitant]
     Dosage: 25 MG, 1X/DAY
     Dates: end: 20081202
  7. LORAZEPAM [Concomitant]
     Dosage: 2.5 MG, 1X/DAY
     Dates: end: 20081202

REACTIONS (1)
  - HAEMATOMA [None]
